FAERS Safety Report 6638084-2 (Version None)
Quarter: 2010Q1

REPORT INFORMATION
  Report Type: 
  Country: None (occurrence: None)
  Receive Date: 20100317
  Receipt Date: 20100305
  Transmission Date: 20100710
  Serious: Yes (Death, Hospitalization)
  Sender: FDA-Public Use
  Company Number: DE-PFIZER INC-2009284725

PATIENT
  Age: 69 Year
  Sex: Male
  Weight: 78 kg

DRUGS (10)
  1. SUNITINIB MALATE [Suspect]
     Indication: METASTATIC RENAL CELL CARCINOMA
     Dosage: 50 MG, 1X/DAY
     Route: 048
     Dates: start: 20070615, end: 20080208
  2. ASPIRIN [Concomitant]
     Dosage: 100 UNK, 2X/DAY
     Dates: start: 19900101
  3. ISCOVER [Concomitant]
     Indication: STENT PLACEMENT
     Dosage: UNK
     Dates: start: 20070101
  4. OLMESARTAN MEDOXOMIL [Concomitant]
     Indication: HYPERTENSION
     Dosage: UNK
     Dates: start: 20070101
  5. DILTIAZEM [Concomitant]
     Dosage: UNK
     Dates: start: 20060101
  6. ZOCOR [Concomitant]
     Dosage: 20 UNK, 1X/DAY
     Dates: start: 20070101
  7. PANTOZOL [Concomitant]
     Dosage: 40 UNK, UNK
     Dates: start: 20070301
  8. ARCOXIA [Concomitant]
     Indication: RENAL CELL CARCINOMA
     Dosage: 90 UNK, 1X/DAY
     Dates: start: 20070301
  9. PLAVIX [Concomitant]
     Dosage: 75 UNK, 1X/DAY
  10. OXYGESIC [Concomitant]
     Dosage: 1/2 OF 20,  2X/DAY

REACTIONS (2)
  - MYOCARDIAL INFARCTION [None]
  - TRANSIENT ISCHAEMIC ATTACK [None]
